FAERS Safety Report 18569810 (Version 1)
Quarter: 2020Q4

REPORT INFORMATION
  Report Type: Spontaneous
  Country: NL (occurrence: NL)
  Receive Date: 20201202
  Receipt Date: 20201202
  Transmission Date: 20210114
  Serious: Yes (Other)
  Sender: FDA-Public Use
  Company Number: NL-TEVA-2020-NL-1854073

PATIENT
  Age: 16 Year
  Sex: Male
  Weight: 65 kg

DRUGS (11)
  1. PARACETAMOL TABLET 1000MG / BRAND NAME NOT SPECIFIED [Concomitant]
     Dosage: 1000 MG (MILLIGRAM), THERAPY START DATE AND END DATE: ASKED BUT UNKNOWN
  2. CIPROFLOXACINE TABLET 750MG / BRAND NAME NOT SPECIFIED [Concomitant]
     Dosage: 750 MG (MILLIGRAM), THERAPY START DATE AND END DATE: ASKED BUT UNKNOWN
  3. MACROGOL POEDER V DRANK 10G / FORLAX POEDER VOOR DRANK SACHET 10G [Concomitant]
     Dosage: 10 G (GRAM), THERAPY START DATE AND END DATE: ASKED BUT UNKNOWN
  4. APREPITANT CAPSULE 125+80MG (COMBIVERPAKKING) / BRAND NAME NOT SPECIFI [Concomitant]
     Dosage: 125+80 MG (MILLIGRAM), THERAPY START DATE AND END DATE: ASKED BUT UNKNOWN
  5. NATRIUMWATERSTOFCARBONAAT INFVLST 84MG/ML / BRAND NAME NOT SPECIFIED [Concomitant]
     Dosage: 84 MG/ML (MILLIGRAM PER MILLILITER), THERAPY START DATE AND END DATE: ASKED BUT UNKNOWN
  6. FOLINEZUUR INJVLST 25MG/ML (NA-ZOUT) / BRAND NAME NOT SPECIFIED [Concomitant]
     Dosage: 25 MG/ML (MILLIGRAM PER MILLILITER), THERAPY START DATE AND END DATE: ASKED BUT UNKNOWN
  7. MAGNESIUMGLUCONAAT TABLET 500MG (1,2MMOL MAG) / BRAND NAME NOT SPECIFI [Concomitant]
     Dosage: 500 MG (MILLIGRAM), THERAPY START DATE AND END DATE: ASKED BUT UNKNOWN
  8. LORAZEPAM TABLET 2,5MG / BRAND NAME NOT SPECIFIED [Concomitant]
     Dosage: 2.5 MG (MILLIGRAM), THERAPY START DATE AND END DATE: ASKED BUT UNKNOWN
  9. LIDOCAINE/PRILOCAINE CREME 25/25MG/G / BRAND NAME NOT SPECIFIED [Concomitant]
     Dosage: 25/25 MG/G, THERAPY START DATE AND END DATE: ASKED BUT UNKNOWN
  10. METHOTREXAAT INFOPL CONC 100MG/ML / BRAND NAME NOT SPECIFIED [Suspect]
     Active Substance: METHOTREXATE SODIUM
     Indication: OSTEOSARCOMA
     Dosage: 12000MG / M2 PER INFUSION FOR 4 HOURS, THERAPY END DATE: ASKED BUT UNKNOWN
     Dates: start: 20191210
  11. GRANISETRON INFOPL CONC 1MG/ML / BRAND NAME NOT SPECIFIED [Concomitant]
     Dosage: 1 MG/ML (MILLIGRAM PER MILLILITER), THERAPY START DATE AND END DATE: ASKED BUT UNKNOWN

REACTIONS (1)
  - Generalised tonic-clonic seizure [Recovered/Resolved]

NARRATIVE: CASE EVENT DATE: 20200702
